FAERS Safety Report 24145098 (Version 3)
Quarter: 2024Q4

REPORT INFORMATION
  Report Type: Spontaneous
  Country: PT (occurrence: PT)
  Receive Date: 20240729
  Receipt Date: 20241028
  Transmission Date: 20250114
  Serious: Yes (Death, Hospitalization)
  Sender: BOEHRINGER INGELHEIM
  Company Number: PT-BoehringerIngelheim-2024-BI-039503

PATIENT
  Age: 83 Year
  Sex: Female
  Weight: 65 kg

DRUGS (4)
  1. SPESOLIMAB [Suspect]
     Active Substance: SPESOLIMAB
     Indication: Generalised pustular psoriasis
     Route: 042
     Dates: start: 2024, end: 20240711
  2. BACTRIM [Suspect]
     Active Substance: SULFAMETHOXAZOLE\TRIMETHOPRIM
     Indication: Prophylaxis
     Dates: start: 2024
  3. PREDNISONE [Concomitant]
     Active Substance: PREDNISONE
     Indication: Product used for unknown indication
  4. SULFAMETHOXAZOLE\TRIMETHOPRIM [Concomitant]
     Active Substance: SULFAMETHOXAZOLE\TRIMETHOPRIM
     Indication: Prophylaxis

REACTIONS (8)
  - Cardiac failure acute [Fatal]
  - Endocarditis [Fatal]
  - Hyperthermia [Recovered/Resolved]
  - Thrombocytopenia [Unknown]
  - Renal impairment [Unknown]
  - Renal failure [Unknown]
  - Opportunistic infection [Not Recovered/Not Resolved]
  - Dermatosis [Not Recovered/Not Resolved]

NARRATIVE: CASE EVENT DATE: 20240101
